FAERS Safety Report 15420708 (Version 1)
Quarter: 2018Q3

REPORT INFORMATION
  Report Type: Spontaneous
  Country: US (occurrence: US)
  Receive Date: 20180924
  Receipt Date: 20180924
  Transmission Date: 20181010
  Serious: No
  Sender: FDA-Public Use
  Company Number: US-ALLERGAN-1803735US

PATIENT
  Age: 78 Year
  Sex: Male

DRUGS (2)
  1. LINZESS [Suspect]
     Active Substance: LINACLOTIDE
     Dosage: 290 ?G, UNK
     Route: 048
     Dates: start: 201801
  2. LINZESS [Suspect]
     Active Substance: LINACLOTIDE
     Indication: IMPAIRED GASTRIC EMPTYING
     Dosage: 145 ?G, UNK
     Route: 048
     Dates: start: 201702

REACTIONS (4)
  - Off label use [Unknown]
  - Abdominal pain [Recovering/Resolving]
  - Drug ineffective [Unknown]
  - Intentional product misuse [Unknown]
